FAERS Safety Report 6682086-7 (Version None)
Quarter: 2010Q2

REPORT INFORMATION
  Report Type: 
  Country: None (occurrence: None)
  Receive Date: 20100415
  Receipt Date: 20100405
  Transmission Date: 20101027
  Serious: Yes (Hospitalization)
  Sender: FDA-Public Use
  Company Number: US-BIOGENIDEC-2010BI012292

PATIENT
  Age: 57 Year
  Sex: Female

DRUGS (2)
  1. AVONEX [Suspect]
     Indication: MULTIPLE SCLEROSIS
     Route: 030
     Dates: start: 20030201
  2. TYSABRI [Concomitant]
     Indication: MULTIPLE SCLEROSIS
     Route: 042
     Dates: start: 20050214, end: 20050214

REACTIONS (2)
  - PNEUMONIA [None]
  - VOMITING [None]
